FAERS Safety Report 5922684-9 (Version None)
Quarter: 2008Q4

REPORT INFORMATION
  Report Type: 
  Country: None (occurrence: None)
  Receive Date: 20081017
  Receipt Date: 20081007
  Transmission Date: 20090506
  Serious: Yes (Other)
  Sender: FDA-Public Use
  Company Number: US-ELI_LILLY_AND_COMPANY-US200809003243

PATIENT
  Sex: Female

DRUGS (7)
  1. CYMBALTA [Suspect]
     Indication: DEPRESSION
     Dosage: 20 MG, DAILY (1/D)
     Dates: start: 20070101
  2. CYMBALTA [Suspect]
     Dosage: 10 MG, DAILY (1/D)
     Dates: start: 20080101, end: 20080101
  3. CYMBALTA [Suspect]
     Dosage: 60 MG, DAILY (1/D)
  4. BUPROPION HCL [Concomitant]
     Dates: start: 20080101
  5. IBUPROFEN [Concomitant]
     Indication: PAIN
  6. DIAZEPAM [Concomitant]
  7. LEXAPRO [Concomitant]

REACTIONS (6)
  - DEPRESSION [None]
  - DRUG INEFFECTIVE [None]
  - FEELING ABNORMAL [None]
  - PAIN [None]
  - SPINAL COLUMN STENOSIS [None]
  - SUICIDAL IDEATION [None]
